FAERS Safety Report 6025430-6 (Version None)
Quarter: 2008Q4

REPORT INFORMATION
  Report Type: 
  Country: None (occurrence: None)
  Receive Date: 20081231
  Receipt Date: 20081216
  Transmission Date: 20090506
  Serious: Yes (Death, Hospitalization)
  Sender: FDA-Public Use
  Company Number: DE-CELGENEUS-062-21880-08111117

PATIENT
  Sex: Male
  Weight: 65 kg

DRUGS (1)
  1. REVLIMID [Suspect]
     Indication: PLASMACYTOMA
     Route: 048
     Dates: start: 20080929, end: 20081116

REACTIONS (2)
  - PULMONARY EMBOLISM [None]
  - SYNCOPE [None]
